FAERS Safety Report 5815532-9 (Version None)
Quarter: 2008Q3

REPORT INFORMATION
  Report Type: 
  Country: None (occurrence: None)
  Receive Date: 20080716
  Receipt Date: 20080702
  Transmission Date: 20090109
  Serious: Yes (Death)
  Sender: FDA-Public Use
  Company Number: 2008001573

PATIENT
  Sex: Female
  Weight: 45.5 kg

DRUGS (2)
  1. ERLOTINIB (ERLOTINIB) (TABLET) (ERLOTINIB) [Suspect]
     Indication: NON-SMALL CELL LUNG CANCER
     Dosage: (150 MG, QD), ORAL
     Route: 048
     Dates: start: 20080311, end: 20080404
  2. BRAIN RADIATION THERAPY [Suspect]
     Dosage: (2.5 , 5 TIMES/WEEK)

REACTIONS (7)
  - BLOOD GLUCOSE INCREASED [None]
  - CULTURE TISSUE SPECIMEN POSITIVE [None]
  - HEADACHE [None]
  - MUCORMYCOSIS [None]
  - NECROSIS [None]
  - NO THERAPEUTIC RESPONSE [None]
  - SINUS DISORDER [None]
